FAERS Safety Report 9462125 (Version 3)
Quarter: 2013Q3

REPORT INFORMATION
  Report Type: Spontaneous
  Country: US (occurrence: None)
  Receive Date: 20130813
  Receipt Date: 20130924
  Transmission Date: 20140515
  Serious: Yes (Other)
  Sender: FDA-Public Use
  Company Number: 2013P1015531

PATIENT
  Age: 17 Year
  Sex: Male
  Weight: 65.77 kg

DRUGS (4)
  1. MYORISAN [Suspect]
     Indication: ACNE
     Route: 048
     Dates: start: 20121102, end: 20121202
  2. CLARVAVIS [Suspect]
     Indication: ACNE
     Dates: end: 20121102
  3. UCERIS [Suspect]
     Indication: COLITIS ULCERATIVE
     Dates: start: 2013
  4. CEFTIN [Concomitant]

REACTIONS (3)
  - Pancreatitis [None]
  - Colitis ulcerative [None]
  - Constipation [None]
